FAERS Safety Report 7966118-1 (Version None)
Quarter: 2011Q4

REPORT INFORMATION
  Report Type: 
  Country: None (occurrence: None)
  Receive Date: 20111208
  Receipt Date: 20111111
  Transmission Date: 20120403
  Serious: No
  Sender: FDA-Public Use
  Company Number: US-BAYER-2011-110435

PATIENT
  Sex: Female
  Weight: 81.179 kg

DRUGS (6)
  1. CENTRUM CARDIO [Concomitant]
  2. LISINOPRIL [Concomitant]
  3. ASPIRIN [Concomitant]
  4. BENEFIBER [Concomitant]
  5. ALEVE (CAPLET) [Suspect]
     Indication: BURNING SENSATION
     Dosage: 1 DF, QD
     Route: 048
     Dates: start: 20110601
  6. ALLOPURINOL [Concomitant]

REACTIONS (1)
  - NO ADVERSE EVENT [None]
